FAERS Safety Report 10204786 (Version 1)
Quarter: 2014Q2

REPORT INFORMATION
  Report Type: Spontaneous
  Country: CN (occurrence: CN)
  Receive Date: 20140529
  Receipt Date: 20140529
  Transmission Date: 20141212
  Serious: Yes (Life-Threatening)
  Sender: FDA-Public Use
  Company Number: CN-ASTRAZENECA-2014SE36200

PATIENT
  Age: 29012 Day
  Sex: Female

DRUGS (4)
  1. METOPROLOL SUCCINATE [Suspect]
     Indication: HYPERTENSION
     Route: 048
     Dates: start: 20121127, end: 20121206
  2. METOPROLOL SUCCINATE [Suspect]
     Indication: HYPERTENSION
     Route: 048
     Dates: start: 20121207, end: 20121217
  3. CARBAMAZEPINE [Suspect]
     Route: 048
     Dates: start: 20121212
  4. AMLODIPINE [Suspect]
     Indication: HYPERTENSION
     Dates: start: 20121212, end: 20121217

REACTIONS (1)
  - Sinus arrest [Recovered/Resolved]
